FAERS Safety Report 16190921 (Version 1)
Quarter: 2019Q2

REPORT INFORMATION
  Report Type: Spontaneous
  Country: US (occurrence: US)
  Receive Date: 20190412
  Receipt Date: 20190412
  Transmission Date: 20190711
  Serious: No
  Sender: FDA-Public Use
  Company Number: US-BAXTER-2019BAX007006

PATIENT
  Sex: Female

DRUGS (1)
  1. EXTRANEAL [Suspect]
     Active Substance: CALCIUM CHLORIDE\ICODEXTRIN\MAGNESIUM CHLORIDE\SODIUM CHLORIDE\SODIUM LACTATE
     Indication: PERITONEAL DIALYSIS
     Route: 033
     Dates: start: 2018, end: 20190103

REACTIONS (6)
  - Skin exfoliation [Recovering/Resolving]
  - Joint swelling [Recovering/Resolving]
  - Rash scarlatiniform [Recovering/Resolving]
  - Viral infection [Recovering/Resolving]
  - Dry skin [Unknown]
  - Rash generalised [Recovering/Resolving]
